FAERS Safety Report 8257149-5 (Version None)
Quarter: 2012Q1

REPORT INFORMATION
  Report Type: 
  Country: None (occurrence: None)
  Receive Date: 20120330
  Receipt Date: 20120330
  Transmission Date: 20120608
  Serious: Yes (Other)
  Sender: FDA-Public Use
  Company Number: None

PATIENT
  Sex: Female
  Weight: 56.6996 kg

DRUGS (2)
  1. RECLAST [Suspect]
     Indication: CHEMOTHERAPY
     Dosage: 15 MIN INFUSION
     Dates: start: 20101206
  2. RECLAST [Suspect]
     Indication: OSTEOPOROSIS
     Dosage: 15 MIN INFUSION
     Dates: start: 20101206

REACTIONS (7)
  - PALPITATIONS [None]
  - ARTHRALGIA [None]
  - WEIGHT DECREASED [None]
  - HYPOPHAGIA [None]
  - BACK PAIN [None]
  - SLEEP DISORDER [None]
  - GASTROINTESTINAL DISORDER [None]
